FAERS Safety Report 7451917-5 (Version None)
Quarter: 2011Q2

REPORT INFORMATION
  Report Type: 
  Country: None (occurrence: None)
  Receive Date: 20110502
  Receipt Date: 20110426
  Transmission Date: 20111010
  Serious: Yes (Hospitalization, Disabling, Other)
  Sender: FDA-Public Use
  Company Number: US-MERCK-1011USA01990

PATIENT
  Age: 69 Year
  Sex: Female
  Weight: 63 kg

DRUGS (3)
  1. FOSAMAX [Suspect]
     Indication: OSTEOPOROSIS
     Route: 048
     Dates: start: 19990405
  2. FOSAMAX [Suspect]
     Route: 048
     Dates: start: 20020107
  3. CALCIUM (UNSPECIFIED) [Concomitant]
     Route: 065

REACTIONS (41)
  - ADVERSE DRUG REACTION [None]
  - PATELLA FRACTURE [None]
  - CAROTID BRUIT [None]
  - HERPES ZOSTER [None]
  - VAGINAL CYST [None]
  - CERUMEN IMPACTION [None]
  - OTITIS MEDIA [None]
  - OSTEONECROSIS OF JAW [None]
  - GASTROOESOPHAGEAL REFLUX DISEASE [None]
  - PHLEBITIS [None]
  - OEDEMA PERIPHERAL [None]
  - ATROPHIC VULVOVAGINITIS [None]
  - WRIST FRACTURE [None]
  - ACTINIC KERATOSIS [None]
  - PAIN IN EXTREMITY [None]
  - TREATMENT NONCOMPLIANCE [None]
  - SKIN LESION [None]
  - OSTEOARTHRITIS [None]
  - SEBORRHOEIC KERATOSIS [None]
  - GINGIVAL INFECTION [None]
  - DEAFNESS [None]
  - RASH [None]
  - INFECTION [None]
  - TOOTH DISORDER [None]
  - SYNCOPE [None]
  - STRESS [None]
  - HEADACHE [None]
  - EUSTACHIAN TUBE DISORDER [None]
  - CYSTITIS [None]
  - BAROTITIS MEDIA [None]
  - MASS [None]
  - ARTHRALGIA [None]
  - HYPOTENSION [None]
  - JAW DISORDER [None]
  - DEAFNESS NEUROSENSORY [None]
  - URINARY TRACT INFECTION [None]
  - HYPERTENSION [None]
  - TYMPANIC MEMBRANE PERFORATION [None]
  - FEMUR FRACTURE [None]
  - HEPATITIS [None]
  - MUSCULAR WEAKNESS [None]
